FAERS Safety Report 21582032 (Version 1)
Quarter: 2022Q4

REPORT INFORMATION
  Report Type: Spontaneous
  Country: NO (occurrence: None)
  Receive Date: 20221111
  Receipt Date: 20221111
  Transmission Date: 20230113
  Serious: Yes (Hospitalization)
  Sender: FDA-Public Use
  Company Number: NO-009507513-2210NOR008738

PATIENT

DRUGS (18)
  1. RITUXIMAB [Suspect]
     Active Substance: RITUXIMAB
     Indication: Viraemia
     Dosage: UNK
     Route: 065
  2. RITUXIMAB [Suspect]
     Active Substance: RITUXIMAB
     Indication: Relapsing-remitting multiple sclerosis
  3. RITUXIMAB [Suspect]
     Active Substance: RITUXIMAB
     Indication: COVID-19
  4. SOTROVIMAB [Suspect]
     Active Substance: SOTROVIMAB
     Indication: COVID-19
     Dosage: UNK
     Route: 065
  5. SOTROVIMAB [Suspect]
     Active Substance: SOTROVIMAB
     Indication: Relapsing-remitting multiple sclerosis
  6. SOTROVIMAB [Suspect]
     Active Substance: SOTROVIMAB
     Indication: Viraemia
  7. CEFOTAXIME [Suspect]
     Active Substance: CEFOTAXIME SODIUM
     Indication: COVID-19
     Dosage: UNK
     Route: 065
  8. CEFOTAXIME [Suspect]
     Active Substance: CEFOTAXIME SODIUM
     Indication: Relapsing-remitting multiple sclerosis
  9. CEFOTAXIME [Suspect]
     Active Substance: CEFOTAXIME SODIUM
     Indication: Viraemia
  10. PREDNISOLONE [Suspect]
     Active Substance: PREDNISOLONE
     Indication: COVID-19
     Dosage: UNK
     Route: 065
  11. PREDNISOLONE [Suspect]
     Active Substance: PREDNISOLONE
     Indication: Relapsing-remitting multiple sclerosis
  12. PREDNISOLONE [Suspect]
     Active Substance: PREDNISOLONE
     Indication: Viraemia
  13. REMDESIVIR [Suspect]
     Active Substance: REMDESIVIR
     Indication: COVID-19
     Dosage: UNK
     Route: 065
  14. REMDESIVIR [Suspect]
     Active Substance: REMDESIVIR
     Indication: Viraemia
  15. REMDESIVIR [Suspect]
     Active Substance: REMDESIVIR
     Indication: Relapsing-remitting multiple sclerosis
  16. CEFOTAXIME SODIUM [Suspect]
     Active Substance: CEFOTAXIME SODIUM
     Indication: Relapsing-remitting multiple sclerosis
     Dosage: UNK
     Route: 065
  17. CEFOTAXIME SODIUM [Suspect]
     Active Substance: CEFOTAXIME SODIUM
     Indication: Viraemia
  18. CEFOTAXIME SODIUM [Suspect]
     Active Substance: CEFOTAXIME SODIUM
     Indication: COVID-19

REACTIONS (5)
  - Drug ineffective for unapproved indication [Unknown]
  - COVID-19 [Unknown]
  - Off label use [Unknown]
  - COVID-19 pneumonia [Unknown]
  - Vaccination failure [Unknown]

NARRATIVE: CASE EVENT DATE: 20220101
